FAERS Safety Report 12498141 (Version 2)
Quarter: 2016Q3

REPORT INFORMATION
  Report Type: Report from Study
  Country: FR (occurrence: FR)
  Receive Date: 20160626
  Receipt Date: 20160728
  Transmission Date: 20161109
  Serious: Yes (Death)
  Sender: FDA-Public Use
  Company Number: FR-ROCHE-1781406

PATIENT
  Age: 29 Year
  Sex: Male

DRUGS (4)
  1. DIAZEPAM. [Suspect]
     Active Substance: DIAZEPAM
     Indication: PRODUCT USED FOR UNKNOWN INDICATION
     Route: 065
  2. COCAINE [Suspect]
     Active Substance: COCAINE
     Indication: PRODUCT USED FOR UNKNOWN INDICATION
     Route: 065
  3. NORDIAZEPAM [Suspect]
     Active Substance: NORDAZEPAM
     Indication: PRODUCT USED FOR UNKNOWN INDICATION
     Route: 065
  4. DUROGESIC [Suspect]
     Active Substance: FENTANYL
     Indication: PRODUCT USED FOR UNKNOWN INDICATION
     Dosage: 3 DUROGESIC PATCHES (ONE 50 MCG/H AND DOSAGE OF OTHER TWO NOT REPORTED); CUMULATIVE DOSAGE: }50MCG/H
     Route: 003

REACTIONS (1)
  - Toxicity to various agents [Fatal]
